FAERS Safety Report 22331250 (Version 1)
Quarter: 2023Q2

REPORT INFORMATION
  Report Type: Spontaneous
  Country: CA (occurrence: None)
  Receive Date: 20230517
  Receipt Date: 20230517
  Transmission Date: 20230721
  Serious: Yes (Other)
  Sender: FDA-Public Use
  Company Number: CA-Orion Corporation ORION PHARMA-TREX2019-1514

PATIENT
  Age: 59 Year
  Sex: Female

DRUGS (4)
  1. METHOTREXATE [Suspect]
     Active Substance: METHOTREXATE
     Indication: Product used for unknown indication
     Dosage: DOSE: 20-25 MG
     Route: 065
     Dates: start: 2000, end: 2002
  2. DULOXETINE [Concomitant]
     Active Substance: DULOXETINE
     Route: 065
  3. PREDNISONE [Concomitant]
     Active Substance: PREDNISONE
     Route: 065
  4. ORENCIA [Concomitant]
     Active Substance: ABATACEPT
     Route: 065

REACTIONS (2)
  - Gastrointestinal disorder [Unknown]
  - Therapeutic response decreased [Unknown]
